FAERS Safety Report 17492583 (Version 2)
Quarter: 2020Q1

REPORT INFORMATION
  Report Type: Spontaneous
  Country: GB (occurrence: GB)
  Receive Date: 20200304
  Receipt Date: 20200313
  Transmission Date: 20200409
  Serious: Yes (Other)
  Sender: FDA-Public Use
  Company Number: GB-TEVA-2020-GB-1194064

PATIENT
  Sex: Female

DRUGS (1)
  1. LOSARTAN. [Suspect]
     Active Substance: LOSARTAN
     Indication: BLOOD PRESSURE MEASUREMENT
     Route: 065

REACTIONS (5)
  - Angina pectoris [Recovered/Resolved]
  - Prinzmetal angina [Unknown]
  - Circulatory collapse [Unknown]
  - Aura [Recovered/Resolved]
  - Aphasia [Unknown]
